FAERS Safety Report 7893252-7 (Version None)
Quarter: 2011Q4

REPORT INFORMATION
  Report Type: 
  Country: None (occurrence: None)
  Receive Date: 20111104
  Receipt Date: 20111101
  Transmission Date: 20120403
  Serious: Yes (Other)
  Sender: FDA-Public Use
  Company Number: PHEH2011US08294

PATIENT
  Sex: Male

DRUGS (1)
  1. LOPRESSOR [Suspect]
     Indication: BLOOD PRESSURE
     Dosage: UNK UKN, UNK

REACTIONS (1)
  - ATRIAL FIBRILLATION [None]
